FAERS Safety Report 7229223-3 (Version None)
Quarter: 2011Q1

REPORT INFORMATION
  Report Type: 
  Country: None (occurrence: None)
  Receive Date: 20110117
  Receipt Date: 20110104
  Transmission Date: 20110831
  Serious: Yes (Hospitalization)
  Sender: FDA-Public Use
  Company Number: US-CELGENEUS-163-21880-10121051

PATIENT
  Age: 61 Year
  Sex: Male
  Weight: 92 kg

DRUGS (6)
  1. REVLIMID [Suspect]
     Route: 048
     Dates: start: 20100405
  2. RED BLOOD CELLS [Concomitant]
     Dosage: 2 UNITS
     Route: 051
     Dates: start: 20101202, end: 20101202
  3. REVLIMID [Suspect]
     Route: 048
     Dates: start: 20100101, end: 20101014
  4. EPOETIN ALFA [Suspect]
     Dosage: 60000 UNITS
     Route: 058
     Dates: start: 20100404
  5. EPOETIN ALFA [Suspect]
     Dosage: 60000 UNITS
     Route: 058
     Dates: start: 20101102, end: 20101202
  6. ASPIRIN [Concomitant]
     Route: 065

REACTIONS (1)
  - VISCERAL ARTERIAL ISCHAEMIA [None]
